FAERS Safety Report 8611803-1 (Version None)
Quarter: 2012Q3

REPORT INFORMATION
  Report Type: 
  Country: None (occurrence: None)
  Receive Date: 20120822
  Receipt Date: 20120814
  Transmission Date: 20120928
  Serious: Yes (Hospitalization)
  Sender: FDA-Public Use
  Company Number: US-ROCHE-1101767

PATIENT
  Age: 54 Year
  Sex: Female
  Weight: 47 kg

DRUGS (4)
  1. PACLITAXEL [Suspect]
     Indication: OVARIAN EPITHELIAL CANCER
     Dosage: LAST DOSE PRIOR TO SAE WAS TAKEN ON 06/JUL/2012. DAY 15 HELD DUE TO SBO.
     Route: 042
     Dates: start: 20120706
  2. AVASTIN [Suspect]
     Indication: OVARIAN EPITHELIAL CANCER
     Dosage: LAST DOSE PRIOR TO SAE WAS TAKEN ON 29/JUN/2012
     Dates: start: 20120629
  3. CARBOPLATIN [Suspect]
     Indication: OVARIAN EPITHELIAL CANCER
     Dosage: AUC= 6 OVER 30 MINUTES ON DAY 1. LAST DOSE PRIOR TO SAE WAS TAKEN ON 29/MAY/2012
     Route: 042
     Dates: start: 20120529
  4. VELIPARIB [Suspect]
     Indication: OVARIAN EPITHELIAL CANCER
     Dosage: LAST DOSE PRIOR TO SAE WAS TAKEN ON 03/JUL/2012
     Route: 048

REACTIONS (10)
  - ABDOMINAL PAIN [None]
  - HYPOALBUMINAEMIA [None]
  - ANAEMIA [None]
  - HYPOMAGNESAEMIA [None]
  - SMALL INTESTINAL OBSTRUCTION [None]
  - VOMITING [None]
  - PLATELET COUNT DECREASED [None]
  - NAUSEA [None]
  - HYPOKALAEMIA [None]
  - NEUTROPHIL COUNT DECREASED [None]
